FAERS Safety Report 14864066 (Version 3)
Quarter: 2018Q2

REPORT INFORMATION
  Report Type: Spontaneous
  Country: DE (occurrence: DE)
  Receive Date: 20180508
  Receipt Date: 20180622
  Transmission Date: 20180711
  Serious: Yes (Hospitalization, Other)
  Sender: FDA-Public Use
  Company Number: DE-GILEAD-2018-0337057

PATIENT
  Age: 66 Year
  Sex: Female
  Weight: 48 kg

DRUGS (7)
  1. ZYDELIG [Suspect]
     Active Substance: IDELALISIB
     Dosage: 100 MG, BID
     Route: 065
     Dates: start: 20170417
  2. ZYDELIG [Suspect]
     Active Substance: IDELALISIB
     Indication: GENE MUTATION
     Dosage: UNK
     Route: 065
     Dates: start: 20170320, end: 20170410
  3. ZYDELIG [Suspect]
     Active Substance: IDELALISIB
     Indication: CHRONIC LYMPHOCYTIC LEUKAEMIA
     Dosage: UNK
     Route: 048
     Dates: start: 20170201, end: 201712
  4. OPIPRAMOL [Concomitant]
     Active Substance: OPIPRAMOL
     Dosage: 50 MG, QD
  5. RITUXIMAB. [Suspect]
     Active Substance: RITUXIMAB
     Indication: CHRONIC LYMPHOCYTIC LEUKAEMIA
     Dosage: 775 MG 5 INFUSIONS
     Route: 065
     Dates: start: 201702, end: 201711
  6. RITUXIMAB. [Suspect]
     Active Substance: RITUXIMAB
     Indication: GENE MUTATION
  7. PANTOPRAZOL                        /01263201/ [Concomitant]
     Active Substance: PANTOPRAZOLE
     Dosage: 40 MG, QD

REACTIONS (10)
  - Hypokalaemia [Unknown]
  - Pleural effusion [Unknown]
  - Gastroenteritis norovirus [Unknown]
  - Viral infection [Unknown]
  - Diarrhoea [Unknown]
  - Rectal haemorrhage [Unknown]
  - Pneumonia influenzal [Unknown]
  - Hypochromic anaemia [Unknown]
  - Gastroenteritis norovirus [Unknown]
  - Oedema peripheral [Unknown]

NARRATIVE: CASE EVENT DATE: 20170410
